FAERS Safety Report 23675069 (Version 2)
Quarter: 2024Q2

REPORT INFORMATION
  Report Type: Spontaneous
  Country: JP (occurrence: JP)
  Receive Date: 20240326
  Receipt Date: 20240414
  Transmission Date: 20240716
  Serious: Yes (Other)
  Sender: FDA-Public Use
  Company Number: JP-002147023-NVSJ2024JP003648

PATIENT
  Sex: Male

DRUGS (15)
  1. ENTRESTO [Suspect]
     Active Substance: SACUBITRIL\VALSARTAN
     Indication: Hypertension
     Dosage: 100 MG
     Route: 048
     Dates: start: 2023
  2. ENTRESTO [Suspect]
     Active Substance: SACUBITRIL\VALSARTAN
     Dosage: 200 MG
     Route: 048
     Dates: start: 2023
  3. CABOMETYX [Concomitant]
     Active Substance: CABOZANTINIB S-MALATE
     Indication: Renal cell carcinoma
     Dosage: UNK
     Route: 065
     Dates: start: 20230724
  4. CARVEDILOL [Concomitant]
     Active Substance: CARVEDILOL
     Indication: Product used for unknown indication
     Dosage: 10 MG
     Route: 065
     Dates: start: 2021
  5. CARVEDILOL [Concomitant]
     Active Substance: CARVEDILOL
     Dosage: 5 MG
     Route: 065
     Dates: start: 2021
  6. NIFEDIPINE [Concomitant]
     Active Substance: NIFEDIPINE
     Indication: Product used for unknown indication
     Dosage: 20 MG
     Route: 065
     Dates: start: 2021
  7. NIFEDIPINE [Concomitant]
     Active Substance: NIFEDIPINE
     Dosage: 40 MG
     Route: 065
     Dates: start: 2022
  8. NIFEDIPINE [Concomitant]
     Active Substance: NIFEDIPINE
     Dosage: 60 MG
     Route: 065
     Dates: start: 2022
  9. NIFEDIPINE [Concomitant]
     Active Substance: NIFEDIPINE
     Dosage: 40 MG
     Route: 065
     Dates: start: 2023
  10. NIFEDIPINE [Concomitant]
     Active Substance: NIFEDIPINE
     Dosage: 60 MG
     Route: 065
     Dates: start: 2023
  11. FUROSEMIDE [Concomitant]
     Active Substance: FUROSEMIDE
     Indication: Product used for unknown indication
     Dosage: 20 MG
     Route: 065
     Dates: start: 2023
  12. FUROSEMIDE [Concomitant]
     Active Substance: FUROSEMIDE
     Dosage: 40 MG
     Route: 065
     Dates: start: 2023
  13. FUROSEMIDE [Concomitant]
     Active Substance: FUROSEMIDE
     Dosage: 60 MG
     Route: 065
     Dates: start: 2023
  14. JARDIANCE [Concomitant]
     Active Substance: EMPAGLIFLOZIN
     Indication: Product used for unknown indication
     Dosage: 10 MG
     Route: 065
     Dates: start: 2023
  15. SAMSCA [Concomitant]
     Active Substance: TOLVAPTAN
     Indication: Product used for unknown indication
     Dosage: 3.75 MG
     Route: 065
     Dates: start: 2023

REACTIONS (2)
  - Blood creatinine increased [Unknown]
  - Cardiac failure [Recovered/Resolved]
